FAERS Safety Report 19924027 (Version 2)
Quarter: 2022Q1

REPORT INFORMATION
  Report Type: Spontaneous
  Country: US (occurrence: US)
  Receive Date: 20211006
  Receipt Date: 20220125
  Transmission Date: 20220424
  Serious: No
  Sender: FDA-Public Use
  Company Number: US-GW PHARMA-202109USGW04791

PATIENT

DRUGS (2)
  1. EPIDIOLEX [Suspect]
     Active Substance: CANNABIDIOL
     Indication: Lennox-Gastaut syndrome
     Dosage: 17.64 MG/KG/DAY, 400 MILLIGRAM, BID
     Dates: start: 201912
  2. EPIDIOLEX [Suspect]
     Active Substance: CANNABIDIOL
     Dosage: 19.84 MG/KG/DAY 450 MILLIGRAM, BID
     Route: 048

REACTIONS (2)
  - Weight increased [Unknown]
  - Weight increased [Unknown]
